FAERS Safety Report 16261823 (Version 4)
Quarter: 2019Q2

REPORT INFORMATION
  Report Type: Report from Study
  Country: US (occurrence: US)
  Receive Date: 20190501
  Receipt Date: 20190627
  Transmission Date: 20190711
  Serious: Yes (Death, Hospitalization, Other)
  Sender: FDA-Public Use
  Company Number: US-ACTELION-A-US2017-160887

PATIENT
  Age: 47 Year
  Sex: Female
  Weight: 77.1 kg

DRUGS (11)
  1. OPSUMIT [Suspect]
     Active Substance: MACITENTAN
     Indication: PULMONARY HYPERTENSION
     Dosage: 10 MG, QD
     Route: 048
     Dates: start: 20170920, end: 20190417
  2. CALCIUM [Concomitant]
     Active Substance: CALCIUM
     Dosage: UNK
     Dates: start: 20190417
  3. CIPROFLOXACIN. [Concomitant]
     Active Substance: CIPROFLOXACIN
     Dosage: UNK
     Dates: start: 20190414
  4. HYDROMORPHONE [Concomitant]
     Active Substance: HYDROMORPHONE
     Dosage: UNK
     Dates: start: 20190414
  5. ZOFRAN [Concomitant]
     Active Substance: ONDANSETRON HYDROCHLORIDE
     Dosage: UNK
     Dates: start: 20190414
  6. MAGNESIUM [Concomitant]
     Active Substance: MAGNESIUM
  7. ELIQUIS [Concomitant]
     Active Substance: APIXABAN
  8. EPINEPHRINE. [Concomitant]
     Active Substance: EPINEPHRINE
     Dosage: UNK
     Dates: start: 20190417
  9. NARCAN [Concomitant]
     Active Substance: NALOXONE HYDROCHLORIDE
     Dosage: UNK
     Dates: start: 20190417
  10. METRONIDAZOLE. [Concomitant]
     Active Substance: METRONIDAZOLE
     Dosage: UNK
     Dates: start: 20190414
  11. BICARBONATE [Concomitant]
     Active Substance: SODIUM BICARBONATE
     Dosage: UNK
     Dates: start: 20190417

REACTIONS (14)
  - Septic shock [Fatal]
  - Weight decreased [Unknown]
  - Weight increased [Unknown]
  - Nasopharyngitis [Unknown]
  - Diverticulitis [Fatal]
  - Joint swelling [Unknown]
  - Unresponsive to stimuli [Fatal]
  - Abdominal pain lower [Fatal]
  - Alanine aminotransferase increased [Unknown]
  - Cardiac arrest [Fatal]
  - Pain [Fatal]
  - Aspartate aminotransferase increased [Unknown]
  - Oedema peripheral [Recovered/Resolved]
  - Dyspnoea [Unknown]

NARRATIVE: CASE EVENT DATE: 20170925
